FAERS Safety Report 7493328-2 (Version None)
Quarter: 2011Q2

REPORT INFORMATION
  Report Type: 
  Country: None (occurrence: None)
  Receive Date: 20110520
  Receipt Date: 20110512
  Transmission Date: 20111010
  Serious: Yes (Other)
  Sender: FDA-Public Use
  Company Number: JP-PFIZER INC-2011077135

PATIENT
  Sex: Female

DRUGS (15)
  1. DIOVAN [Suspect]
     Indication: HYPERTENSION
     Dosage: 20 MG, UID/QD
     Route: 048
     Dates: start: 20110208, end: 20110217
  2. NADIC [Concomitant]
     Indication: HYPERTENSION
     Dosage: UNK
     Dates: start: 20110310
  3. RABEPRAZOLE SODIUM [Concomitant]
     Indication: REFLUX OESOPHAGITIS
     Dosage: UNK
     Route: 048
     Dates: start: 20110204
  4. RESTAS [Concomitant]
     Indication: INSOMNIA
     Dosage: UNK
     Route: 048
     Dates: start: 19900508
  5. LAC B [Concomitant]
     Indication: REFLUX OESOPHAGITIS
     Dosage: UNK
     Route: 048
     Dates: start: 20110203
  6. CELECOXIB [Suspect]
     Indication: SPINAL OSTEOARTHRITIS
     Dosage: 200 MG DAILY
     Route: 048
     Dates: start: 20110208
  7. LANSOPRAZOLE [Suspect]
     Indication: DYSPEPSIA
  8. LANSOPRAZOLE [Suspect]
     Indication: REFLUX OESOPHAGITIS
     Dosage: 30 MG, UID/QD
     Route: 048
     Dates: start: 20110215, end: 20110310
  9. LAXOBERON [Suspect]
     Indication: ENDOSCOPY LARGE BOWEL
     Dosage: 1 DF, UID/QD
     Route: 048
     Dates: start: 20110213, end: 20110213
  10. CANDESARTAN CILEXETIL [Suspect]
     Indication: HYPERTENSION
     Dosage: 4 MG, UID/QD
     Route: 048
     Dates: start: 20110218, end: 20110310
  11. MAGCOROL P [Suspect]
     Indication: ENDOSCOPY LARGE BOWEL
     Dosage: 1 DF, UID/QD
     Dates: start: 20110213, end: 20110213
  12. MAGMITT [Concomitant]
     Indication: REFLUX OESOPHAGITIS
  13. LAC B [Concomitant]
     Indication: DYSPEPSIA
  14. RABEPRAZOLE SODIUM [Concomitant]
     Indication: DYSPEPSIA
  15. MAGMITT [Concomitant]
     Indication: DYSPEPSIA
     Dosage: UNK
     Route: 048
     Dates: start: 20110204

REACTIONS (1)
  - ERYTHEMA MULTIFORME [None]
